FAERS Safety Report 7310689-5 (Version None)
Quarter: 2011Q1

REPORT INFORMATION
  Report Type: 
  Country: None (occurrence: None)
  Receive Date: 20110224
  Receipt Date: 20110215
  Transmission Date: 20110831
  Serious: Yes (Death)
  Sender: FDA-Public Use
  Company Number: TR-SANOFI-AVENTIS-2011SA009715

PATIENT
  Age: 68 Year
  Sex: Male

DRUGS (4)
  1. LEVOFLOXACIN [Concomitant]
     Route: 065
  2. VERAPAMIL HYDROCHLORIDE [Interacting]
     Route: 065
  3. ENALAPRIL MALEATE [Concomitant]
     Route: 065
  4. RIFAMPICIN [Suspect]
     Route: 065

REACTIONS (2)
  - DRUG INTERACTION [None]
  - SUDDEN DEATH [None]
